FAERS Safety Report 14238446 (Version 1)
Quarter: 2017Q4

REPORT INFORMATION
  Report Type: Spontaneous
  Country: US (occurrence: None)
  Receive Date: 20171129
  Receipt Date: 20171129
  Transmission Date: 20180321
  Serious: No
  Sender: FDA-Public Use
  Company Number: None

PATIENT
  Age: 75 Year
  Sex: Male

DRUGS (1)
  1. DAPTOMYCIN 700MG HOSPIRA [Suspect]
     Active Substance: DAPTOMYCIN
     Indication: OSTEOMYELITIS
     Dosage: ROUTE - IVP?FREQUENCY Q 24 HR
     Dates: start: 20171124, end: 20171124

REACTIONS (1)
  - Chills [None]

NARRATIVE: CASE EVENT DATE: 20171124
